FAERS Safety Report 17953481 (Version 2)
Quarter: 2020Q3

REPORT INFORMATION
  Report Type: Spontaneous
  Country: AR (occurrence: AR)
  Receive Date: 20200628
  Receipt Date: 20200810
  Transmission Date: 20201103
  Serious: Yes (Other)
  Sender: FDA-Public Use
  Company Number: NVSC2020AR181939

PATIENT
  Age: 54 Year
  Sex: Female

DRUGS (1)
  1. SECUKINUMAB. [Suspect]
     Active Substance: SECUKINUMAB
     Indication: PSORIASIS
     Dosage: UNK (STARTED A YEAR AGO)
     Route: 065

REACTIONS (3)
  - Anaemia [Unknown]
  - Haematocrit decreased [Unknown]
  - Lichenoid keratosis [Unknown]
